FAERS Safety Report 10083598 (Version 2)
Quarter: 2014Q2

REPORT INFORMATION
  Report Type: Spontaneous
  Country: US (occurrence: US)
  Receive Date: 20140417
  Receipt Date: 20140424
  Transmission Date: 20141212
  Serious: Yes (Hospitalization)
  Sender: FDA-Public Use
  Company Number: US-JNJFOC-20140406399

PATIENT
  Age: 82 Year
  Sex: Female
  Weight: 73.85 kg

DRUGS (9)
  1. XARELTO [Suspect]
     Indication: PULMONARY EMBOLISM
     Route: 048
     Dates: start: 201311
  2. VIT D [Concomitant]
     Route: 065
  3. SPIRIVA [Concomitant]
     Route: 065
  4. PROAIR (SALBUTAMOL SULFATE) [Concomitant]
     Route: 065
  5. VESICARE [Concomitant]
     Route: 065
  6. DIOVAN [Concomitant]
     Route: 065
  7. ACTOS [Concomitant]
     Route: 065
  8. TOPROL [Concomitant]
     Route: 065
  9. TRAZODONE [Concomitant]
     Route: 065

REACTIONS (3)
  - Cerebral haemorrhage [Recovered/Resolved]
  - Injury [Unknown]
  - Periorbital haematoma [Recovering/Resolving]
